FAERS Safety Report 5831746-6 (Version None)
Quarter: 2008Q3

REPORT INFORMATION
  Report Type: 
  Country: None (occurrence: None)
  Receive Date: 20080803
  Receipt Date: 20080724
  Transmission Date: 20090109
  Serious: Yes (Other)
  Sender: FDA-Public Use
  Company Number: PHEH2008US06654

PATIENT
  Age: 70 Year
  Sex: Female
  Weight: 69.116 kg

DRUGS (5)
  1. RECLAST [Suspect]
     Indication: OSTEOPOROSIS
     Dosage: 5 MG INFUSED OVER 30 MINUTES
     Dates: start: 20080408
  2. XANAX [Concomitant]
  3. SYNTHROID [Concomitant]
  4. PROTONIX [Concomitant]
  5. CITRACAL + D [Concomitant]
     Dosage: UNK
     Dates: start: 20080601

REACTIONS (6)
  - ARTHRALGIA [None]
  - ARTHRITIS [None]
  - ASPIRATION JOINT [None]
  - PULMONARY EMBOLISM [None]
  - SYNOVITIS [None]
  - THROMBOSIS [None]
